FAERS Safety Report 4881370-7 (Version None)
Quarter: 2006Q1

REPORT INFORMATION
  Report Type: 
  Country: None (occurrence: None)
  Receive Date: 20060111
  Receipt Date: 20060111
  Transmission Date: 20060701
  Serious: Yes (Hospitalization)
  Sender: FDA-Public Use
  Company Number: None

PATIENT
  Sex: Female
  Weight: 78 kg

DRUGS (1)
  1. GEODON [Suspect]
     Dosage: 10 MG IM X 1
     Route: 042
     Dates: start: 20050501

REACTIONS (6)
  - AGGRESSION [None]
  - APHASIA [None]
  - DYSTONIA [None]
  - MUSCLE TWITCHING [None]
  - PHYSICAL ASSAULT [None]
  - SWOLLEN TONGUE [None]
